FAERS Safety Report 23830477 (Version 1)
Quarter: 2024Q2

REPORT INFORMATION
  Report Type: Spontaneous
  Country: JO (occurrence: JO)
  Receive Date: 20240508
  Receipt Date: 20240508
  Transmission Date: 20240715
  Serious: Yes (Other)
  Sender: FDA-Public Use
  Company Number: JO-STRIDES ARCOLAB LIMITED-2024SP005239

PATIENT
  Age: 5 Decade
  Sex: Female

DRUGS (5)
  1. LETROZOLE [Suspect]
     Active Substance: LETROZOLE
     Indication: Invasive ductal breast carcinoma
     Dosage: UNK
     Route: 065
     Dates: end: 202102
  2. TAMOXIFEN [Suspect]
     Active Substance: TAMOXIFEN
     Indication: Invasive ductal breast carcinoma
     Dosage: UNK
     Route: 065
     Dates: start: 2017, end: 2020
  3. PACLITAXEL [Suspect]
     Active Substance: PACLITAXEL
     Indication: Invasive ductal breast carcinoma
     Dosage: UNK
     Route: 065
     Dates: end: 202102
  4. FULVESTRANT [Suspect]
     Active Substance: FULVESTRANT
     Indication: Invasive ductal breast carcinoma
     Dosage: UNK
     Route: 065
     Dates: end: 202102
  5. BISOPROLOL [Concomitant]
     Active Substance: BISOPROLOL\BISOPROLOL FUMARATE
     Indication: Supraventricular tachycardia
     Dosage: UNK
     Route: 065

REACTIONS (2)
  - Drug ineffective [Unknown]
  - Malignant neoplasm progression [Unknown]
